FAERS Safety Report 8917975 (Version 1)
Quarter: 2012Q4

REPORT INFORMATION
  Report Type: Report from Study
  Country: NL (occurrence: NL)
  Receive Date: 20121120
  Receipt Date: 20121120
  Transmission Date: 20130627
  Serious: Yes (Hospitalization)
  Sender: FDA-Public Use
  Company Number: NL-ABBOTT-12P-114-1006801-00

PATIENT
  Age: 1 None
  Sex: Female
  Weight: 10.85 kg

DRUGS (1)
  1. SYNAGIS [Suspect]
     Indication: HEART DISEASE CONGENITAL
     Dosage: 15mg/kg body weight
     Route: 030
     Dates: start: 20120918

REACTIONS (2)
  - Feeding disorder [Recovered/Resolved]
  - Skin lesion [Not Recovered/Not Resolved]
